FAERS Safety Report 8973932 (Version 1)
Quarter: 2012Q4

REPORT INFORMATION
  Report Type: 
  Country: JP (occurrence: JP)
  Receive Date: 20121218
  Receipt Date: 20121218
  Transmission Date: 20130627
  Serious: Yes (Hospitalization)
  Sender: FDA-Public Use
  Company Number: JP-PFIZER INC-2005026291

PATIENT
  Age: 13 Year
  Sex: Male
  Weight: 42 kg

DRUGS (3)
  1. IBUPROFEN [Suspect]
     Indication: DRUG USE FOR UNKNOWN INDICATION
     Dosage: UNSPECIFIED
     Route: 065
  2. CEFTERAM PIVOXIL [Suspect]
     Dosage: UNSPECIFIED
     Route: 065
  3. DOMPERIDONE [Suspect]
     Dosage: UNSPECIFIED
     Route: 065

REACTIONS (5)
  - Necrosis [Recovering/Resolving]
  - Rash vesicular [Recovered/Resolved]
  - Liver function test abnormal [Recovered/Resolved]
  - Decreased appetite [Recovered/Resolved]
  - Extrapyramidal disorder [Recovered/Resolved]
